FAERS Safety Report 10027499 (Version 1)
Quarter: 2014Q1

REPORT INFORMATION
  Report Type: Spontaneous
  Country: US (occurrence: US)
  Receive Date: 20140321
  Receipt Date: 20140321
  Transmission Date: 20141002
  Serious: No
  Sender: FDA-Public Use
  Company Number: US-PFIZER INC-2014079327

PATIENT
  Sex: 0

DRUGS (2)
  1. DEPO-TESTOSTERONE [Suspect]
     Dosage: 200 MG, MONTHLY
  2. DEPO-TESTOSTERONE [Suspect]
     Dosage: 400 MG, MONTHLY

REACTIONS (1)
  - Drug ineffective [Unknown]
